FAERS Safety Report 10354478 (Version 2)
Quarter: 2014Q3

REPORT INFORMATION
  Report Type: Spontaneous
  Country: JP (occurrence: None)
  Receive Date: 20140729
  Receipt Date: 20140910
  Transmission Date: 20150326
  Serious: Yes (Other)
  Sender: FDA-Public Use
  Company Number: ABR_01743_2014

PATIENT
  Age: 58 Year
  Sex: Female

DRUGS (1)
  1. GLIADEL [Suspect]
     Active Substance: CARMUSTINE
     Indication: GLIOBLASTOMA
     Dosage: INTRACEREBRAL,(61.60MG)
     Dates: start: 20140704

REACTIONS (1)
  - Paralysis [None]

NARRATIVE: CASE EVENT DATE: 201407
